FAERS Safety Report 21853796 (Version 1)
Quarter: 2023Q1

REPORT INFORMATION
  Report Type: Spontaneous
  Country: US (occurrence: None)
  Receive Date: 20230111
  Receipt Date: 20230111
  Transmission Date: 20230417
  Serious: Yes (Life-Threatening, Hospitalization)
  Sender: FDA-Public Use
  Company Number: None

PATIENT
  Age: 76 Year
  Sex: Female
  Weight: 51.3 kg

DRUGS (1)
  1. ELIQUIS [Suspect]
     Active Substance: APIXABAN
     Indication: Pulmonary embolism
     Dosage: FREQUENCY : TWICE A DAY;?
     Route: 048
     Dates: start: 20221208, end: 20221227

REACTIONS (7)
  - Dyspnoea exertional [None]
  - Chest pain [None]
  - Haemoglobin decreased [None]
  - Faeces discoloured [None]
  - Gastrointestinal haemorrhage [None]
  - Barrett^s oesophagus [None]
  - Gastric mucosa erythema [None]

NARRATIVE: CASE EVENT DATE: 20221227
